FAERS Safety Report 24226796 (Version 1)
Quarter: 2024Q3

REPORT INFORMATION
  Report Type: Other
  Country: US (occurrence: US)
  Receive Date: 20240820
  Receipt Date: 20240820
  Transmission Date: 20241017
  Serious: Yes (Hospitalization, Other)
  Sender: COREPHARMA
  Company Number: US-CorePharma LLC-2160634

PATIENT
  Age: 28 Year
  Sex: Male

DRUGS (1)
  1. AMLODIPINE BESYLATE [Suspect]
     Active Substance: AMLODIPINE BESYLATE
     Indication: Product used for unknown indication
     Route: 048

REACTIONS (8)
  - Depressed level of consciousness [Recovered/Resolved]
  - Overdose [Unknown]
  - Mental status changes [Recovered/Resolved]
  - Hypotension [Recovered/Resolved]
  - Multiple organ dysfunction syndrome [Recovered/Resolved]
  - Vasoplegia syndrome [Recovered/Resolved]
  - Hypothermia [Recovered/Resolved]
  - Shock [Recovered/Resolved]
